FAERS Safety Report 13694921 (Version 1)
Quarter: 2017Q2

REPORT INFORMATION
  Report Type: Spontaneous
  Country: US (occurrence: US)
  Receive Date: 20170627
  Receipt Date: 20170627
  Transmission Date: 20170830
  Serious: No
  Sender: FDA-Public Use
  Company Number: US-BAYER-2017-123872

PATIENT
  Age: 50 Year
  Sex: Female

DRUGS (1)
  1. BETASERON [Suspect]
     Active Substance: INTERFERON BETA-1B
     Indication: MULTIPLE SCLEROSIS
     Dosage: 0.3 MG, QOD

REACTIONS (8)
  - Pruritus generalised [None]
  - Bone pain [None]
  - Insomnia [None]
  - Urticaria [None]
  - Burning sensation [None]
  - Fatigue [None]
  - Generalised erythema [None]
  - Stress [None]
